FAERS Safety Report 13794779 (Version 2)
Quarter: 2017Q3

REPORT INFORMATION
  Report Type: Spontaneous
  Country: NL (occurrence: NL)
  Receive Date: 20170726
  Receipt Date: 20170811
  Transmission Date: 20171127
  Serious: Yes (Other)
  Sender: FDA-Public Use
  Company Number: NL-SA-2017SA130580

PATIENT
  Age: 51 Year
  Sex: Female
  Weight: 62 kg

DRUGS (5)
  1. BISACODYL. [Suspect]
     Active Substance: BISACODYL
     Route: 048
     Dates: start: 20170701, end: 20170701
  2. MAGNESIUM HYDROXIDE. [Concomitant]
     Active Substance: MAGNESIUM HYDROXIDE
     Dosage: STRENGTH: 724MG?DOSE/FREQUENCY: 2DD1
     Route: 048
     Dates: start: 201705
  3. PANTOZOL [Concomitant]
     Active Substance: PANTOPRAZOLE SODIUM
     Route: 048
     Dates: start: 2006
  4. HYDROQUININE [Concomitant]
     Route: 048
     Dates: start: 2012
  5. RIVOTRIL [Concomitant]
     Active Substance: CLONAZEPAM
     Route: 048
     Dates: start: 2012

REACTIONS (9)
  - Hyperhidrosis [Recovered/Resolved]
  - Speech disorder [Recovered/Resolved]
  - Snoring [Recovered/Resolved]
  - Vomiting [Recovered/Resolved]
  - Myoclonus [Recovered/Resolved]
  - Loss of consciousness [Recovered/Resolved]
  - Eye movement disorder [Recovered/Resolved]
  - Abdominal distension [Recovered/Resolved]
  - Diarrhoea [Recovered/Resolved]

NARRATIVE: CASE EVENT DATE: 20170702
